FAERS Safety Report 6985836-5 (Version None)
Quarter: 2010Q3

REPORT INFORMATION
  Report Type: 
  Country: None (occurrence: None)
  Receive Date: 20100827
  Receipt Date: 20100503
  Transmission Date: 20110219
  Serious: No
  Sender: FDA-Public Use
  Company Number: 011240

PATIENT
  Sex: Female
  Weight: 63.6 kg

DRUGS (4)
  1. LACOSAMIDE [Suspect]
     Indication: CONVULSION
     Dosage: 50 MG BID ONE TABLET IN AM AND ONE TABLET IN PM (DRUG STRENGTH 50 MG) ORAL
     Route: 048
     Dates: start: 20100425
  2. UNKNOWN [Concomitant]
  3. CARBAMAZEPINE [Concomitant]
  4. CONTRACEPTIVES NOS [Concomitant]

REACTIONS (4)
  - ABDOMINAL PAIN [None]
  - CONSTIPATION [None]
  - CONVULSION [None]
  - VAGINAL HAEMORRHAGE [None]
